FAERS Safety Report 10041085 (Version 1)
Quarter: 2014Q1

REPORT INFORMATION
  Report Type: Spontaneous
  Country: US (occurrence: None)
  Receive Date: 20140326
  Receipt Date: 20140326
  Transmission Date: 20141002
  Serious: Yes (Other)
  Sender: FDA-Public Use
  Company Number: None

PATIENT
  Age: 15 Year
  Sex: Male
  Weight: 55 kg

DRUGS (2)
  1. EPINEPHRINE [Suspect]
     Indication: ANAPHYLACTIC REACTION
     Route: 030
     Dates: start: 20140325
  2. EPINEPHRINE [Suspect]
     Indication: FOOD ALLERGY
     Route: 030
     Dates: start: 20140325

REACTIONS (2)
  - Device issue [None]
  - Injection site bruising [None]
